FAERS Safety Report 9708005 (Version 10)
Quarter: 2014Q4

REPORT INFORMATION
  Report Type: Spontaneous
  Country: US (occurrence: US)
  Receive Date: 20131125
  Receipt Date: 20141219
  Transmission Date: 20150529
  Serious: Yes (Hospitalization, Disabling, Other)
  Sender: FDA-Public Use
  Company Number: US-MERCK-1311USA008145

PATIENT
  Sex: Male
  Weight: 99.77 kg

DRUGS (5)
  1. PROPECIA [Suspect]
     Active Substance: FINASTERIDE
     Dosage: 1 MG, QD
     Route: 048
     Dates: start: 20101220, end: 20111104
  2. FINASTERIDE. [Suspect]
     Active Substance: FINASTERIDE
     Dosage: 5 MG, QD
     Route: 048
     Dates: start: 20070319
  3. FINASTERIDE. [Suspect]
     Active Substance: FINASTERIDE
     Dosage: 5 MG, SPLIT INTO 1/5 DAILY
     Route: 048
     Dates: start: 20100810, end: 20100918
  4. PROSCAR [Suspect]
     Active Substance: FINASTERIDE
     Indication: ALOPECIA
     Dosage: 5 MG, SPLIT INTO 1/5 DAILY
     Route: 048
     Dates: start: 200704, end: 201012
  5. PROPECIA [Suspect]
     Active Substance: FINASTERIDE
     Indication: ANDROGENETIC ALOPECIA
     Dosage: 1 MG, QD
     Route: 048
     Dates: start: 199812, end: 201111

REACTIONS (45)
  - Fatigue [Not Recovered/Not Resolved]
  - Libido decreased [Not Recovered/Not Resolved]
  - Muscle atrophy [Unknown]
  - Arthralgia [Unknown]
  - Eye pain [Unknown]
  - Alopecia [Unknown]
  - Cognitive disorder [Not Recovered/Not Resolved]
  - Dependence [Unknown]
  - Ejaculation disorder [Not Recovered/Not Resolved]
  - Wrong technique in drug usage process [Unknown]
  - Blepharitis [Unknown]
  - Generalised anxiety disorder [Not Recovered/Not Resolved]
  - Blindness [Unknown]
  - Peyronie^s disease [Not Recovered/Not Resolved]
  - Acne [Not Recovered/Not Resolved]
  - Hypogonadism [Not Recovered/Not Resolved]
  - Tongue movement disturbance [Unknown]
  - Chronic fatigue syndrome [Unknown]
  - Eczema [Not Recovered/Not Resolved]
  - Semen volume decreased [Not Recovered/Not Resolved]
  - Depression [Not Recovered/Not Resolved]
  - Heart rate irregular [Unknown]
  - Scrotal pain [Not Recovered/Not Resolved]
  - Male orgasmic disorder [Not Recovered/Not Resolved]
  - Vitamin D abnormal [Unknown]
  - Dry eye [Unknown]
  - Erectile dysfunction [Not Recovered/Not Resolved]
  - Wisdom teeth removal [Unknown]
  - Tachycardia paroxysmal [Unknown]
  - Blood testosterone decreased [Unknown]
  - Arthralgia [Unknown]
  - Varicose vein [Unknown]
  - Drug administration error [Unknown]
  - Hand fracture [Unknown]
  - Pain in jaw [Unknown]
  - Dry skin [Unknown]
  - Obsessive-compulsive disorder [Unknown]
  - Testicular pain [Unknown]
  - Attention deficit/hyperactivity disorder [Not Recovered/Not Resolved]
  - Penile curvature [Unknown]
  - Myalgia [Unknown]
  - Headache [Unknown]
  - Lacrimation decreased [Unknown]
  - Supraventricular tachycardia [Unknown]
  - Sexual dysfunction [Unknown]

NARRATIVE: CASE EVENT DATE: 20010213
